FAERS Safety Report 8339775-8 (Version None)
Quarter: 2012Q2

REPORT INFORMATION
  Report Type: 
  Country: None (occurrence: None)
  Receive Date: 20120507
  Receipt Date: 20120423
  Transmission Date: 20120825
  Serious: Yes (Hospitalization)
  Sender: FDA-Public Use
  Company Number: SE-CELGENEUS-150-21660-12041386

PATIENT
  Age: 49 Year
  Sex: Female

DRUGS (6)
  1. VENLAFAXINE [Concomitant]
     Route: 065
  2. LEVOTHYROXINE SODIUM [Concomitant]
     Route: 065
  3. RAMIPRIL [Concomitant]
     Route: 065
  4. ABRAXANE [Suspect]
     Route: 041
     Dates: start: 20111001, end: 20120206
  5. ACETAMINOPHEN W/ CODEINE [Concomitant]
     Dosage: 500/30 MG
     Route: 065
  6. EMCONCOR CHF [Concomitant]
     Route: 065

REACTIONS (2)
  - OBSTRUCTIVE AIRWAYS DISORDER [None]
  - TACHYPNOEA [None]
